FAERS Safety Report 5302051-1 (Version None)
Quarter: 2007Q2

REPORT INFORMATION
  Report Type: 
  Country: None (occurrence: None)
  Receive Date: 20070419
  Receipt Date: 20070412
  Transmission Date: 20071010
  Serious: Yes (Hospitalization)
  Sender: FDA-Public Use
  Company Number: FR-SOLVAY-00207001259

PATIENT
  Age: 83 Year
  Sex: Female

DRUGS (4)
  1. PERINDOPRIL ERBUMINE [Suspect]
     Indication: ILL-DEFINED DISORDER
     Dosage: DAILY DOSE: 4 MILLIGRAM(S)
     Route: 048
     Dates: end: 20061222
  2. ALDACTONE [Suspect]
     Indication: ILL-DEFINED DISORDER
     Dosage: DAILY DOSE: 50 MILLIGRAM(S)
     Route: 048
     Dates: end: 20061221
  3. NISISCO [Suspect]
     Indication: ILL-DEFINED DISORDER
     Dosage: DAILY DOSE: 1 DOSAGE FORM
     Route: 048
     Dates: end: 20061221
  4. ANTIBIOTIC (UNKNOWN NAME AND MANUFACTURER) [Suspect]
     Indication: ILL-DEFINED DISORDER
     Dosage: DAILY DOSE:  UNKNOWN
     Route: 065

REACTIONS (8)
  - ASCITES [None]
  - ATRIAL FIBRILLATION [None]
  - BUNDLE BRANCH BLOCK LEFT [None]
  - DIARRHOEA [None]
  - ELECTROCARDIOGRAM REPOLARISATION ABNORMALITY [None]
  - HAEMATOMA [None]
  - HYPERKALAEMIA [None]
  - RENAL FAILURE ACUTE [None]
